FAERS Safety Report 24251103 (Version 1)
Quarter: 2024Q3

REPORT INFORMATION
  Report Type: Report from Study
  Country: US (occurrence: US)
  Receive Date: 20240826
  Receipt Date: 20240826
  Transmission Date: 20241016
  Serious: Yes (Hospitalization)
  Sender: PFIZER
  Company Number: US-PFIZER INC-PV202400095020

PATIENT
  Age: 70 Year
  Sex: Female

DRUGS (8)
  1. BRAFTOVI [Suspect]
     Active Substance: ENCORAFENIB
     Indication: Malignant melanoma
     Dosage: 450 MG, DAILY
     Route: 048
  2. BRAFTOVI [Suspect]
     Active Substance: ENCORAFENIB
     Dosage: 300 MG, DAILY
     Route: 048
     Dates: start: 20240722, end: 20240722
  3. BRAFTOVI [Suspect]
     Active Substance: ENCORAFENIB
     Dosage: 300 MG, DAILY
     Route: 048
     Dates: start: 20240702
  4. BRAFTOVI [Suspect]
     Active Substance: ENCORAFENIB
     Dosage: 4-75MG CAPSULES BY MOUTH DAILY
     Route: 048
     Dates: start: 20240802
  5. MEKTOVI [Suspect]
     Active Substance: BINIMETINIB
     Indication: Malignant melanoma
     Dosage: 45 MG, 2X/DAY
     Route: 048
  6. MEKTOVI [Suspect]
     Active Substance: BINIMETINIB
     Dosage: 30 MG, 2X/DAY
     Route: 048
     Dates: start: 20240722, end: 20240722
  7. MEKTOVI [Suspect]
     Active Substance: BINIMETINIB
     Dosage: 60 MG, DAILY
     Route: 048
     Dates: start: 20240702, end: 20240802
  8. MEKTOVI [Suspect]
     Active Substance: BINIMETINIB
     Dosage: 4-15MG TABLETS BY MOUTH DAILY
     Route: 048
     Dates: start: 20240802

REACTIONS (10)
  - Back pain [Unknown]
  - Pyrexia [Unknown]
  - Meningitis [Unknown]
  - Pain [Unknown]
  - Myalgia [Unknown]
  - Nausea [Unknown]
  - Vomiting [Unknown]
  - Diarrhoea [Unknown]
  - Decreased appetite [Unknown]
  - Pain in extremity [Recovering/Resolving]
